FAERS Safety Report 6332211-2 (Version None)
Quarter: 2009Q3

REPORT INFORMATION
  Report Type: 
  Country: None (occurrence: None)
  Receive Date: 20090828
  Receipt Date: 20090817
  Transmission Date: 20100115
  Serious: Yes (Other)
  Sender: FDA-Public Use
  Company Number: PK-PFIZER INC-2009255936

PATIENT
  Age: 43 Year

DRUGS (2)
  1. ALPRAZOLAM [Suspect]
     Dosage: 0.5 MG, AS NEEDED
  2. VALIUM [Concomitant]
     Dosage: 10 MG, UNK

REACTIONS (2)
  - DEPENDENCE [None]
  - SOMATOFORM DISORDER [None]
